FAERS Safety Report 10133594 (Version 2)
Quarter: 2014Q2

REPORT INFORMATION
  Report Type: Spontaneous
  Country: US (occurrence: US)
  Receive Date: 20140428
  Receipt Date: 20140429
  Transmission Date: 20141212
  Serious: Yes (Other)
  Sender: FDA-Public Use
  Company Number: US-GLAXOSMITHKLINE-A1071076A

PATIENT
  Age: 76 Year
  Sex: Male

DRUGS (11)
  1. ADVAIR [Suspect]
     Indication: CHRONIC OBSTRUCTIVE PULMONARY DISEASE
     Dosage: 1PUFF TWICE PER DAY
     Route: 055
     Dates: start: 2004
  2. ALBUTEROL [Concomitant]
  3. ASPIRIN [Concomitant]
  4. LIPITOR [Concomitant]
  5. AZELASTINE [Concomitant]
  6. CILOSTAZOL [Concomitant]
  7. CITALOPRAM [Concomitant]
  8. FUROSEMIDE [Concomitant]
  9. METOPROLOL [Concomitant]
  10. RANITIDINE [Concomitant]
  11. PREDNISONE [Concomitant]

REACTIONS (5)
  - Pneumonia [Recovering/Resolving]
  - Chronic obstructive pulmonary disease [Not Recovered/Not Resolved]
  - Cough [Not Recovered/Not Resolved]
  - Oxygen saturation decreased [Unknown]
  - Dyspnoea [Unknown]
